FAERS Safety Report 5685261-3 (Version None)
Quarter: 2008Q1

REPORT INFORMATION
  Report Type: 
  Country: None (occurrence: None)
  Receive Date: 20080328
  Receipt Date: 20080314
  Transmission Date: 20080703
  Serious: Yes (Disabling, Other)
  Sender: FDA-Public Use
  Company Number: NZ-AMGEN-US252118

PATIENT
  Sex: Male

DRUGS (4)
  1. ENBREL [Suspect]
     Indication: JUVENILE ARTHRITIS
     Route: 058
     Dates: start: 20050620, end: 20070830
  2. PREDNISONE TAB [Concomitant]
     Indication: JUVENILE ARTHRITIS
     Route: 048
     Dates: start: 20050907
  3. IBUPROFEN [Concomitant]
     Indication: JUVENILE ARTHRITIS
     Route: 048
  4. METHOTREXATE [Concomitant]
     Indication: JUVENILE ARTHRITIS
     Route: 048

REACTIONS (3)
  - CONDITION AGGRAVATED [None]
  - JUVENILE ARTHRITIS [None]
  - UVEITIS [None]
